FAERS Safety Report 24585190 (Version 11)
Quarter: 2025Q4

REPORT INFORMATION
  Report Type: Spontaneous
  Country: US (occurrence: US)
  Receive Date: 20241106
  Receipt Date: 20251009
  Transmission Date: 20260118
  Serious: Yes (Other)
  Sender: PFIZER
  Company Number: US-PFIZER INC-202400256558

PATIENT
  Age: 70 Year
  Sex: Female

DRUGS (2)
  1. TUKYSA [Suspect]
     Active Substance: TUCATINIB
     Indication: Breast cancer female
     Dosage: 300 MG (2 TABLETS OF 150 MG), 2X/DAY/150MG; 2 TABLETS TWICE DAILY
     Route: 048
     Dates: end: 20250311
  2. TUKYSA [Suspect]
     Active Substance: TUCATINIB
     Indication: Invasive ductal breast carcinoma

REACTIONS (7)
  - Hip surgery [Unknown]
  - Nerve injury [Unknown]
  - Stomatitis [Unknown]
  - Musculoskeletal disorder [Unknown]
  - Cough [Unknown]
  - Illness [Not Recovered/Not Resolved]
  - Off label use [Unknown]
